FAERS Safety Report 16050279 (Version 1)
Quarter: 2019Q1

REPORT INFORMATION
  Report Type: Spontaneous
  Country: US (occurrence: US)
  Receive Date: 20190308
  Receipt Date: 20190308
  Transmission Date: 20190418
  Serious: No
  Sender: FDA-Public Use
  Company Number: US-ASTRAZENECA-2019SE24421

PATIENT
  Sex: Female

DRUGS (3)
  1. FARXIGA [Suspect]
     Active Substance: DAPAGLIFLOZIN PROPANEDIOL
     Dosage: UNKNOWN
     Route: 065
  2. TRADJENTA [Concomitant]
     Active Substance: LINAGLIPTIN
     Indication: GLYCOSYLATED HAEMOGLOBIN DECREASED
  3. BYDUREON BCISE [Suspect]
     Active Substance: EXENATIDE
     Indication: GLYCOSYLATED HAEMOGLOBIN DECREASED
     Route: 058
     Dates: start: 201901

REACTIONS (5)
  - Hypoaesthesia [Unknown]
  - Dry mouth [Unknown]
  - Headache [Unknown]
  - Chills [Unknown]
  - Drug effect incomplete [Unknown]

NARRATIVE: CASE EVENT DATE: 201901
